FAERS Safety Report 7935292 (Version 7)
Quarter: 2015Q1

REPORT INFORMATION
  Report Type: Spontaneous
  Country: US (occurrence: US)
  Receive Date: 20110509
  Receipt Date: 20150121
  Transmission Date: 20150721
  Serious: Yes (Other)
  Sender: FDA-Public Use
  Company Number: US-ROCHE-549220

PATIENT
  Age: 39 Year
  Sex: Female
  Weight: 61.2 kg

DRUGS (3)
  1. TOPAMAX [Suspect]
     Active Substance: TOPIRAMATE
     Indication: PRODUCT USED FOR UNKNOWN INDICATION
     Route: 065
  2. DEPO-PROVERA [Suspect]
     Active Substance: MEDROXYPROGESTERONE ACETATE
     Indication: ENDOMETRIOSIS
     Route: 065
     Dates: start: 1998, end: 200508
  3. ACCUTANE [Suspect]
     Active Substance: ISOTRETINOIN
     Indication: ACNE
     Dosage: THE PATIENT WAS TAKING ISOTRETINOIN AT A DOSE OF 40/80 DAILY
     Route: 065
     Dates: start: 20011225, end: 20020528

REACTIONS (14)
  - Anaemia [Recovered/Resolved]
  - Arthralgia [Unknown]
  - Sacroiliitis [Unknown]
  - Anal fissure [Unknown]
  - Colitis ulcerative [Unknown]
  - Adjustment disorder [Unknown]
  - Eating disorder [Recovered/Resolved]
  - Anxiety [Recovering/Resolving]
  - Panic attack [Recovering/Resolving]
  - Inflammatory bowel disease [Unknown]
  - Osteopenia [Recovering/Resolving]
  - Crohn^s disease [Unknown]
  - Depression [Recovering/Resolving]
  - Haemorrhoids [Unknown]

NARRATIVE: CASE EVENT DATE: 2003
